FAERS Safety Report 21352360 (Version 1)
Quarter: 2022Q3

REPORT INFORMATION
  Report Type: Spontaneous
  Country: US (occurrence: None)
  Receive Date: 20220920
  Receipt Date: 20220920
  Transmission Date: 20221026
  Serious: No
  Sender: FDA-Public Use
  Company Number: US-ROCHE-3145001

PATIENT
  Age: 48 Year
  Sex: Male

DRUGS (1)
  1. GAVRETO [Suspect]
     Active Substance: PRALSETINIB
     Indication: Thyroid cancer
     Route: 048
     Dates: start: 20220622

REACTIONS (8)
  - Dry mouth [Unknown]
  - Taste disorder [Unknown]
  - Oral pain [Unknown]
  - Fatigue [Unknown]
  - Gastrooesophageal reflux disease [Unknown]
  - Nausea [Unknown]
  - Gingival pain [Unknown]
  - Ageusia [Unknown]

NARRATIVE: CASE EVENT DATE: 20220715
